FAERS Safety Report 6989260-0 (Version None)
Quarter: 2010Q3

REPORT INFORMATION
  Report Type: 
  Country: None (occurrence: None)
  Receive Date: 20100916
  Receipt Date: 20091029
  Transmission Date: 20110219
  Serious: Yes (Hospitalization)
  Sender: FDA-Public Use
  Company Number: DE-PFIZER INC-2009277727

PATIENT
  Sex: Male
  Weight: 69 kg

DRUGS (6)
  1. LYRICA [Suspect]
     Indication: GENERALISED ANXIETY DISORDER
     Dosage: 450 UNK/DAY
     Route: 048
     Dates: start: 20090811
  2. LYRICA [Interacting]
     Indication: AGITATION
  3. SEROQUEL [Interacting]
     Indication: SCHIZOPHRENIA, DISORGANISED TYPE
     Dosage: 1000 MG/DAY
     Route: 048
     Dates: start: 20090812
  4. SEROQUEL [Interacting]
     Dosage: 1200 MG/DAY
     Route: 048
     Dates: end: 20090811
  5. PROTHIPENDYL [Interacting]
     Indication: SLEEP DISORDER
     Dosage: 80 UNK/DAY
     Route: 048
     Dates: start: 20090813
  6. FLUPENTIXOL [Concomitant]
     Indication: SCHIZOPHRENIA, DISORGANISED TYPE
     Dosage: 10 UNK/DAY
     Route: 048
     Dates: start: 20090715

REACTIONS (3)
  - DRUG INTERACTION [None]
  - DRUG LEVEL INCREASED [None]
  - SLEEP DISORDER [None]
